FAERS Safety Report 9838591 (Version 2)
Quarter: 2014Q2

REPORT INFORMATION
  Report Type: Spontaneous
  Country: US (occurrence: None)
  Receive Date: 20131205
  Receipt Date: 20140416
  Transmission Date: 20141212
  Serious: Yes (Hospitalization)
  Sender: FDA-Public Use
  Company Number: 163-POMAL-13110537

PATIENT
  Age: 80 Year
  Sex: Male

DRUGS (8)
  1. POMALYST (POMALIDOMIDE) (3 MILLIGRAM, CAPSULES) [Suspect]
     Indication: PLASMA CELL MYELOMA
     Route: 048
     Dates: start: 20130617, end: 2013
  2. EPOGEN (EPOETIN ALFA) [Concomitant]
  3. ASA (ACETYLSALICYLIC ACID) [Concomitant]
  4. LASIX (FUROSEMIDE) [Concomitant]
  5. DEXAMETHASONE [Concomitant]
  6. LIPITOR (ATORVASTATIN) [Concomitant]
  7. FLOMAX (TAMSULOSIN HYDROCHLORIDE) [Concomitant]
  8. XARELTO (RIVAROXABAN) [Concomitant]

REACTIONS (2)
  - Thrombosis [None]
  - Deep vein thrombosis [None]
